FAERS Safety Report 6866808-8 (Version None)
Quarter: 2010Q2

REPORT INFORMATION
  Report Type: 
  Country: None (occurrence: None)
  Receive Date: 20100528
  Receipt Date: 20100402
  Transmission Date: 20101027
  Serious: No
  Sender: FDA-Public Use
  Company Number: 2010042992

PATIENT
  Age: 82 Year
  Sex: Female
  Weight: 90.7 kg

DRUGS (9)
  1. TOVIAZ [Suspect]
     Indication: BLADDER DISORDER
     Dosage: 4 MG, 1X/DAY, ORAL
     Route: 048
     Dates: start: 20100401, end: 20100401
  2. TOVIAZ [Suspect]
     Indication: MICTURITION URGENCY
     Dosage: 4 MG, 1X/DAY, ORAL
     Route: 048
     Dates: start: 20100401, end: 20100401
  3. CAPTOPRIL [Concomitant]
  4. VERAPAMIL [Concomitant]
  5. SYNTHROID [Concomitant]
  6. HYDROCHLOROTHIAZIDE [Concomitant]
  7. PRAVASTATIN [Concomitant]
  8. DOXYCYCLINE [Concomitant]
  9. ACETYLSALICYLIC ACID (ACETYLSALICYCLIC ACID) [Concomitant]

REACTIONS (1)
  - DYSURIA [None]
